FAERS Safety Report 25797598 (Version 1)
Quarter: 2025Q3

REPORT INFORMATION
  Report Type: Spontaneous
  Country: GB (occurrence: GB)
  Receive Date: 20250912
  Receipt Date: 20250912
  Transmission Date: 20251020
  Serious: No
  Sender: MERCK SHARP & DOHME LLC
  Company Number: GB-009507513-2325911

PATIENT
  Age: 73 Year
  Sex: Male

DRUGS (4)
  1. MOLNUPIRAVIR [Suspect]
     Active Substance: MOLNUPIRAVIR
     Indication: Pneumonia
     Route: 065
  2. PIPERACILLIN SODIUM\TAZOBACTAM SODIUM [Concomitant]
     Active Substance: PIPERACILLIN SODIUM\TAZOBACTAM SODIUM
     Indication: Pneumonia
     Route: 065
  3. LEVOFLOXACIN [Concomitant]
     Active Substance: LEVOFLOXACIN
     Indication: Pneumonia
  4. OSELTAMIVIR [Concomitant]
     Active Substance: OSELTAMIVIR
     Route: 065

REACTIONS (1)
  - Product use in unapproved indication [Unknown]
